FAERS Safety Report 5607935-2 (Version None)
Quarter: 2008Q1

REPORT INFORMATION
  Report Type: 
  Country: None (occurrence: None)
  Receive Date: 20080130
  Receipt Date: 20070911
  Transmission Date: 20080703
  Serious: Yes (Hospitalization)
  Sender: FDA-Public Use
  Company Number: CA-MERCK-0709CAN00143

PATIENT
  Age: 68 Year
  Sex: Female
  Weight: 63 kg

DRUGS (14)
  1. CANCIDAS [Suspect]
     Indication: PANCREAS INFECTION
     Route: 042
     Dates: start: 20070905, end: 20070906
  2. PANTOPRAZOLE [Concomitant]
     Indication: PROPHYLAXIS
     Route: 042
     Dates: start: 20070815
  3. CLOTRIMAZOLE [Concomitant]
     Indication: DERMATITIS
     Route: 061
     Dates: start: 20070815
  4. HEPARIN [Concomitant]
     Route: 065
  5. INSULIN [Concomitant]
     Route: 065
  6. DOCUSATE SODIUM [Concomitant]
     Route: 065
  7. GLYCERIN [Concomitant]
     Route: 065
  8. VANCOMYCIN [Concomitant]
     Indication: PSEUDOCYST
     Route: 065
     Dates: start: 20070829, end: 20070919
  9. VANCOMYCIN [Concomitant]
     Indication: ABSCESS
     Route: 065
     Dates: start: 20070829, end: 20070919
  10. DILAUDID [Concomitant]
     Route: 065
  11. BENADRYL [Concomitant]
     Route: 065
  12. LASIX [Concomitant]
     Route: 065
  13. PIPERACILLIN SODIUM AND TAZOBACTAM SODIUM [Concomitant]
     Indication: PSEUDOCYST
     Route: 042
     Dates: start: 20070815, end: 20070905
  14. PIPERACILLIN SODIUM AND TAZOBACTAM SODIUM [Concomitant]
     Indication: ABSCESS
     Route: 042
     Dates: start: 20070815, end: 20070905

REACTIONS (7)
  - ABDOMINAL PAIN UPPER [None]
  - ANAPHYLACTIC REACTION [None]
  - BLOOD PRESSURE INCREASED [None]
  - CHILLS [None]
  - MALAISE [None]
  - OXYGEN SATURATION DECREASED [None]
  - TACHYCARDIA [None]
